FAERS Safety Report 7037732-5 (Version None)
Quarter: 2010Q4

REPORT INFORMATION
  Report Type: 
  Country: None (occurrence: None)
  Receive Date: 20101011
  Receipt Date: 20101007
  Transmission Date: 20110411
  Serious: Yes (Life-Threatening, Hospitalization)
  Sender: FDA-Public Use
  Company Number: SE-B.I. PHARMACEUTICALS,INC./RIDGEFIELD-2010-SW-00251SW

PATIENT
  Sex: Female

DRUGS (4)
  1. COMBIVENT [Suspect]
     Indication: ASTHMA
     Dosage: STRENGTH: 0,5 MG/2.5 MG, DOSAGE REGIMEN: 1 DF
     Route: 055
     Dates: start: 20100726, end: 20100816
  2. BRICANYL [Concomitant]
     Indication: ASTHMA
     Dates: start: 20100401
  3. PULMICORT [Concomitant]
     Indication: ASTHMA
  4. FORMOTEROL FUMARATE [Concomitant]
     Indication: ASTHMA
     Dates: start: 20100401

REACTIONS (5)
  - ASTHMA [None]
  - BRONCHOSPASM [None]
  - DYSPNOEA [None]
  - LARYNGOSPASM [None]
  - TACHYCARDIA [None]
